FAERS Safety Report 9343864 (Version 1)
Quarter: 2013Q2

REPORT INFORMATION
  Report Type: Spontaneous
  Country: US (occurrence: US)
  Receive Date: 20130612
  Receipt Date: 20130612
  Transmission Date: 20140414
  Serious: No
  Sender: FDA-Public Use
  Company Number: US-PFIZER INC-2013175350

PATIENT
  Age: 67 Year
  Sex: Female

DRUGS (2)
  1. LYRICA [Suspect]
     Dosage: UNK
  2. FLEXERIL [Suspect]
     Dosage: UNK

REACTIONS (4)
  - Pain [Unknown]
  - Tenderness [Unknown]
  - Paraesthesia [Unknown]
  - Hypoaesthesia [Unknown]
